FAERS Safety Report 15524822 (Version 4)
Quarter: 2019Q3

REPORT INFORMATION
  Report Type: Spontaneous
  Country: CA (occurrence: CA)
  Receive Date: 20181018
  Receipt Date: 20190919
  Transmission Date: 20191004
  Serious: Yes (Hospitalization, Other)
  Sender: FDA-Public Use
  Company Number: CA-CELLTRION INC.-2017CA015426

PATIENT

DRUGS (25)
  1. INFLECTRA [Suspect]
     Active Substance: INFLIXIMAB-DYYB
     Indication: COLITIS ULCERATIVE
     Dosage: 355 MG, EVERY 0, 2, 6 WEEKS THEN EVERY 8 WEEKS
     Route: 042
     Dates: start: 20170920
  2. INFLECTRA [Suspect]
     Active Substance: INFLIXIMAB-DYYB
     Dosage: 355 MG Q 0,2, 6 WEEKS, THEN EVERY 8 WEEKS
     Route: 042
     Dates: start: 20181004
  3. SOLU-MEDROL [Concomitant]
     Active Substance: METHYLPREDNISOLONE SODIUM SUCCINATE
     Dosage: UNK
     Route: 065
     Dates: start: 20170819
  4. IMURAN [Concomitant]
     Active Substance: AZATHIOPRINE
     Dosage: 150 MG, ONCE A DAY
     Route: 048
     Dates: end: 201810
  5. PIPERACILLIN/TAZOBACTAM [Concomitant]
     Active Substance: PIPERACILLIN SODIUM\TAZOBACTAM SODIUM
     Dosage: 3.375 MG, 1X/DAY
     Route: 065
  6. INFLECTRA [Suspect]
     Active Substance: INFLIXIMAB-DYYB
     Dosage: 355 MG, EVERY 0, 2, 6 WEEKS THEN EVERY 8 WEEKS
     Route: 042
     Dates: start: 20180807
  7. FOLIC ACID. [Concomitant]
     Active Substance: FOLIC ACID
     Dosage: 500 MG, ONCE DAILY
     Route: 048
  8. PREDNISONE. [Concomitant]
     Active Substance: PREDNISONE
     Dosage: UNK
     Route: 065
     Dates: end: 201810
  9. HYDROMORPHONE [Concomitant]
     Active Substance: HYDROMORPHONE
     Dosage: UNK
     Route: 048
  10. ONDANSETRON [Concomitant]
     Active Substance: ONDANSETRON
     Dosage: UNK
     Route: 065
     Dates: end: 201810
  11. SULFASALAZINE. [Concomitant]
     Active Substance: SULFASALAZINE
     Dosage: 1 G, DAILY
     Route: 048
  12. PENTASA [Concomitant]
     Active Substance: MESALAMINE
     Dosage: UNK
     Route: 065
     Dates: end: 201810
  13. RANITIDINE. [Concomitant]
     Active Substance: RANITIDINE
     Dosage: 150 MG, TWICE A DAY
     Route: 065
     Dates: end: 201810
  14. CHOLECALCIFEROL [Concomitant]
     Active Substance: CHOLECALCIFEROL
     Dosage: 1000 IU, ONCE DAILY
     Route: 048
  15. INFLECTRA [Suspect]
     Active Substance: INFLIXIMAB-DYYB
     Dosage: 355 MG Q 0,2, 6 WEEKS, THEN EVERY 8 WEEKS
     Route: 042
     Dates: start: 20190909
  16. BUDESONIDE. [Concomitant]
     Active Substance: BUDESONIDE
     Dosage: 3 MG, 3X/DAY
     Route: 048
     Dates: end: 201810
  17. NYSTATIN. [Concomitant]
     Active Substance: NYSTATIN
     Dosage: UNK
     Route: 065
  18. INFLECTRA [Suspect]
     Active Substance: INFLIXIMAB-DYYB
     Dosage: 5 MG/KG EVERY 8 WEEKS
     Route: 042
     Dates: start: 201809
  19. METHYLPREDNISOLONE. [Concomitant]
     Active Substance: METHYLPREDNISOLONE
     Dosage: UNK
     Route: 065
  20. SULFASALAZINE. [Concomitant]
     Active Substance: SULFASALAZINE
     Dosage: 1 G, 4X/DAY
     Route: 048
  21. BUSCOPAN [Concomitant]
     Active Substance: BUTYLSCOPOLAMINE BROMIDE
     Indication: MUSCLE SPASMS
     Dosage: UNK UNK, AS NEEDED
     Route: 065
     Dates: end: 201810
  22. INFLECTRA [Suspect]
     Active Substance: INFLIXIMAB-DYYB
     Dosage: 355 MG Q 0,2, 6 WEEKS, THEN EVERY 8 WEEKS
     Route: 042
     Dates: start: 20190715
  23. HYDROCORTISONE. [Concomitant]
     Active Substance: HYDROCORTISONE
     Dosage: UNK UNK, 2X/DAY
     Route: 065
  24. AZATHIOPRINE. [Concomitant]
     Active Substance: AZATHIOPRINE
     Dosage: 100 MG, ONCE DAILY
     Route: 065
     Dates: end: 201810
  25. THIAMINE. [Concomitant]
     Active Substance: THIAMINE
     Dosage: 100 MG, DAILY
     Route: 048

REACTIONS (4)
  - Ligament sprain [Recovered/Resolved]
  - Joint dislocation [Unknown]
  - Heart rate irregular [Recovered/Resolved]
  - Blood pressure fluctuation [Recovered/Resolved]

NARRATIVE: CASE EVENT DATE: 20171103
